FAERS Safety Report 8361738 (Version 3)
Quarter: 2013Q3

REPORT INFORMATION
  Report Type: Spontaneous
  Country: MX (occurrence: MX)
  Receive Date: 20120130
  Receipt Date: 20130909
  Transmission Date: 20140515
  Serious: Yes (Other)
  Sender: FDA-Public Use
  Company Number: MX-PFIZER INC-2012017127

PATIENT
  Age: 79 Year
  Sex: Male
  Weight: 60 kg

DRUGS (6)
  1. CELEBREX [Suspect]
     Indication: ARTHRITIS
     Dosage: 200 MG, 2X/DAY
     Route: 048
     Dates: start: 201110, end: 20120124
  2. CELEBREX [Suspect]
     Indication: OSTEOARTHRITIS
  3. NEXIUM [Concomitant]
     Indication: GASTRITIS
     Dosage: 1 TABLET, 1X/DAY
     Route: 048
     Dates: start: 201111
  4. LOSARTAN [Concomitant]
     Indication: HYPERTENSION
     Dosage: 2 TABLETS, 2X/DAY
     Route: 048
     Dates: start: 201001
  5. TRAVATAN [Concomitant]
     Indication: GLAUCOMA
     Dosage: 1 GTT, 1X/DAY
     Route: 047
     Dates: start: 200501
  6. TIMOLOL [Concomitant]
     Indication: GLAUCOMA
     Dosage: 1 GTT, 2X/DAY
     Route: 047
     Dates: start: 200501

REACTIONS (5)
  - Gastritis erosive [Not Recovered/Not Resolved]
  - Abdominal distension [Not Recovered/Not Resolved]
  - Decreased appetite [Not Recovered/Not Resolved]
  - Weight decreased [Not Recovered/Not Resolved]
  - Duodenogastric reflux [Not Recovered/Not Resolved]
